FAERS Safety Report 9687963 (Version 3)
Quarter: 2014Q1

REPORT INFORMATION
  Report Type: Spontaneous
  Country: US (occurrence: US)
  Receive Date: 20131114
  Receipt Date: 20140314
  Transmission Date: 20141002
  Serious: Yes (Life-Threatening, Hospitalization, Other)
  Sender: FDA-Public Use
  Company Number: PHEH2013US023543

PATIENT
  Sex: Male
  Weight: 91 kg

DRUGS (18)
  1. GLEEVEC [Suspect]
     Indication: GASTROINTESTINAL STROMAL TUMOUR
     Dosage: 400 MG, QD
     Dates: start: 200902
  2. GLEEVEC [Suspect]
     Dosage: 600 MG, UNK
  3. GLEEVEC [Suspect]
     Dosage: 800 MG, DAILY
     Dates: start: 201111, end: 20130715
  4. GLEEVEC [Suspect]
     Dosage: 800 MG, DAILY
     Dates: start: 20130802, end: 201312
  5. RECLAST [Suspect]
     Indication: BONE DISORDER
     Dosage: UNK UKN, UNK
     Route: 042
  6. RECLAST [Suspect]
     Dosage: UNK UKN, UNK
  7. MELATONIN [Concomitant]
     Dosage: 10 MG, HS (AT BEDTIME)
     Route: 048
  8. VITAMIN B COMPLEX [Concomitant]
     Dosage: 1 DF, PER DIALYSATE ONCE A DAY
  9. MAGNESIUM OXIDE [Concomitant]
     Dosage: 1 DF, BID
     Route: 048
  10. GINGER [Concomitant]
     Dosage: UNK UKN, UNK
  11. PLACEBO [Concomitant]
     Dosage: UNK UKN, UNK
  12. SUCRAFATE [Concomitant]
     Dosage: 1 G, ONCE A DAY
     Route: 048
  13. HYDROCODONE [Concomitant]
     Dosage: 10/325MG, BID
     Route: 048
  14. MEGESTROL [Concomitant]
     Dosage: 40 MG, ONCE A DAY
     Route: 048
  15. ADVIL ALLERGY AND CONGESTION RELIEF [Concomitant]
     Dosage: 200 MG, BID
     Route: 048
  16. PUMPKIN OIL [Concomitant]
     Dosage: 1000 MG, HS (AT BEDTIME)
     Route: 048
  17. PSYLLIUM [Concomitant]
     Dosage: 2 DF, TID
     Route: 048
  18. IRON                               /03292501/ [Concomitant]
     Dosage: 2 DF, ONCE A DAY
     Route: 048

REACTIONS (30)
  - Feeling abnormal [Unknown]
  - Duodenitis [Unknown]
  - Abdominal pain [Unknown]
  - Drug intolerance [Unknown]
  - Metastases to bone [Unknown]
  - Metastases to lymph nodes [Unknown]
  - Weight decreased [Unknown]
  - Nausea [Unknown]
  - Decreased appetite [Unknown]
  - Constipation [Unknown]
  - Gastrointestinal stromal tumour [Unknown]
  - Hepatic lesion [Unknown]
  - Malignant neoplasm progression [Unknown]
  - Ocular icterus [Unknown]
  - Pain [Unknown]
  - Pollakiuria [Unknown]
  - Swelling [Unknown]
  - Eye swelling [Unknown]
  - Eye haemorrhage [Unknown]
  - Contusion [Unknown]
  - Arthralgia [Unknown]
  - Pyrexia [Unknown]
  - Asthenia [Unknown]
  - Muscle spasms [Unknown]
  - Abdominal pain upper [Unknown]
  - Influenza [Unknown]
  - Musculoskeletal pain [Unknown]
  - Palpitations [Unknown]
  - Dyspnoea [Unknown]
  - Dyspepsia [Unknown]
